FAERS Safety Report 4596164-X (Version None)
Quarter: 2005Q1

REPORT INFORMATION
  Report Type: 
  Country: None (occurrence: None)
  Receive Date: 20050302
  Receipt Date: 20050221
  Transmission Date: 20050727
  Serious: Yes (Other)
  Sender: FDA-Public Use
  Company Number: GB-ROCHE-396247

PATIENT
  Age: 90 Year
  Sex: Female
  Weight: 34.9 kg

DRUGS (10)
  1. TAMIFLU [Suspect]
     Indication: INFLUENZA
     Route: 048
     Dates: start: 20050126, end: 20050204
  2. ASPIRIN [Concomitant]
     Route: 048
  3. CALCICHEW [Concomitant]
     Route: 048
  4. CO-CODAMOL [Concomitant]
     Route: 048
  5. FOLIC ACID [Concomitant]
     Route: 048
  6. FUROSEMIDE [Concomitant]
     Route: 048
  7. LACTULOSE [Concomitant]
     Route: 048
  8. SENNA [Concomitant]
     Route: 048
  9. SERTRALINE HCL [Concomitant]
     Route: 048
  10. TOLTERODINE [Concomitant]
     Route: 048

REACTIONS (8)
  - ASTHENIA [None]
  - BLOOD URINE PRESENT [None]
  - CHROMATURIA [None]
  - DECREASED APPETITE [None]
  - FEELING ABNORMAL [None]
  - PROTEINURIA [None]
  - RENAL DISORDER [None]
  - URINE ODOUR ABNORMAL [None]
